FAERS Safety Report 12808434 (Version 4)
Quarter: 2016Q4

REPORT INFORMATION
  Report Type: Spontaneous
  Country: US (occurrence: US)
  Receive Date: 20161004
  Receipt Date: 20161128
  Transmission Date: 20170207
  Serious: No
  Sender: FDA-Public Use
  Company Number: US-PFIZER INC-2016461989

PATIENT
  Age: 76 Year
  Sex: Female
  Weight: 76 kg

DRUGS (5)
  1. AMLODIPINE [Concomitant]
     Active Substance: AMLODIPINE BESYLATE
     Indication: BLOOD PRESSURE MEASUREMENT
     Dosage: 2.5 MG, TAKES ONE IN THE MORNING IF BLOOD PRESSURE IS NOT UNDER 100, AND TAKES ONE AGAIN AT NIGHT
     Route: 048
     Dates: start: 20160828
  2. PERCOCET [Concomitant]
     Active Substance: ACETAMINOPHEN\OXYCODONE HYDROCHLORIDE
     Indication: PAIN
     Dosage: 5-325 MG, ONE TABLET EVERY 8 HOURS
     Route: 048
     Dates: start: 20160923
  3. VITAMIN B12 [Concomitant]
     Active Substance: CYANOCOBALAMIN
     Indication: VITAMIN B12 DEFICIENCY
     Dosage: 100 MG, 1X/DAY
     Route: 048
     Dates: start: 20160828
  4. LYRICA [Suspect]
     Active Substance: PREGABALIN
     Indication: NEUROPATHY PERIPHERAL
     Dosage: 50 MG, 3X/DAY
     Route: 048
     Dates: start: 20160927
  5. FOLIC ACID. [Concomitant]
     Active Substance: FOLIC ACID
     Indication: BLOOD FOLATE DECREASED
     Dosage: 1 MG, 1X/DAY
     Route: 048
     Dates: start: 20160828

REACTIONS (4)
  - Blood pressure fluctuation [Unknown]
  - Drug ineffective [Recovering/Resolving]
  - Hypoaesthesia [Recovered/Resolved]
  - Disease recurrence [Unknown]

NARRATIVE: CASE EVENT DATE: 201609
